FAERS Safety Report 6348988-6 (Version None)
Quarter: 2009Q3

REPORT INFORMATION
  Report Type: 
  Country: None (occurrence: None)
  Receive Date: 20090911
  Receipt Date: 20090902
  Transmission Date: 20100115
  Serious: Yes (Other)
  Sender: FDA-Public Use
  Company Number: US-BAYER-200932075NA

PATIENT
  Sex: Female
  Weight: 113 kg

DRUGS (1)
  1. YAZ [Suspect]
     Indication: CONTRACEPTION
     Dates: start: 20070101

REACTIONS (2)
  - CHOLECYSTECTOMY [None]
  - FACIAL PAIN [None]
